APPROVED DRUG PRODUCT: CANTIL
Active Ingredient: MEPENZOLATE BROMIDE
Strength: 25MG/5ML
Dosage Form/Route: SOLUTION;ORAL
Application: N010679 | Product #004
Applicant: SANOFI AVENTIS US LLC
Approved: Approved Prior to Jan 1, 1982 | RLD: No | RS: No | Type: DISCN